FAERS Safety Report 20857973 (Version 1)
Quarter: 2022Q2

REPORT INFORMATION
  Report Type: Spontaneous
  Country: US (occurrence: US)
  Receive Date: 20220521
  Receipt Date: 20220521
  Transmission Date: 20220721
  Serious: No
  Sender: FDA-Public Use
  Company Number: US-BRISTOL-MYERS SQUIBB COMPANY-2022-043146

PATIENT
  Age: 79 Year
  Sex: Female
  Weight: 75.7 kg

DRUGS (1)
  1. REVLIMID [Suspect]
     Active Substance: LENALIDOMIDE
     Indication: Plasma cell myeloma
     Dosage: 21 DAYS ON AND SEVEN DAYS OFF, THEN REPEAT
     Route: 048
     Dates: start: 20200429

REACTIONS (1)
  - COVID-19 [Recovered/Resolved]
